FAERS Safety Report 16731583 (Version 2)
Quarter: 2020Q4

REPORT INFORMATION
  Report Type: Report from Study
  Country: BR (occurrence: BR)
  Receive Date: 20190822
  Receipt Date: 20201116
  Transmission Date: 20210113
  Serious: Yes (Other)
  Sender: FDA-Public Use
  Company Number: BR-JNJFOC-20190820189

PATIENT
  Age: 6 Decade
  Sex: Female

DRUGS (9)
  1. GLICLAZIDE [Concomitant]
     Active Substance: GLICLAZIDE
     Dosage: 2 OF 60 MG,
     Route: 065
  2. GLIFAGE [Concomitant]
     Active Substance: METFORMIN HYDROCHLORIDE
     Dosage: 4 OF 500 MG
     Route: 065
  3. DIAZEPAM. [Concomitant]
     Active Substance: DIAZEPAM
     Route: 065
  4. FLUNARIN [Concomitant]
     Active Substance: FLUNARIZINE HYDROCHLORIDE
     Route: 065
  5. SIMPONI [Suspect]
     Active Substance: GOLIMUMAB
     Indication: RHEUMATOID ARTHRITIS
     Route: 058
     Dates: start: 20170822
  6. SIMVASTATIN. [Concomitant]
     Active Substance: SIMVASTATIN
     Route: 065
  7. LOSARTAN. [Concomitant]
     Active Substance: LOSARTAN
     Dosage: 2 OF 50 MILLIGRAMS
     Route: 065
  8. HYDROCHLOROTHIAZIDE. [Concomitant]
     Active Substance: HYDROCHLOROTHIAZIDE
     Route: 065
  9. ATENOLOL. [Concomitant]
     Active Substance: ATENOLOL
     Route: 065

REACTIONS (13)
  - Cough [Unknown]
  - Peripheral swelling [Unknown]
  - Road traffic accident [Unknown]
  - Haemarthrosis [Unknown]
  - Pneumonia [Unknown]
  - Fall [Unknown]
  - Injury [Unknown]
  - Limb injury [Unknown]
  - Pharyngitis [Unknown]
  - Nasopharyngitis [Recovered/Resolved]
  - Head injury [Unknown]
  - Pulmonary congestion [Unknown]
  - Swelling [Unknown]

NARRATIVE: CASE EVENT DATE: 2018
